FAERS Safety Report 25153818 (Version 1)
Quarter: 2025Q2

REPORT INFORMATION
  Report Type: Spontaneous
  Country: US (occurrence: US)
  Receive Date: 20250403
  Receipt Date: 20250403
  Transmission Date: 20250717
  Serious: No
  Sender: ROCHE
  Company Number: US-ROCHE-10000246107

PATIENT

DRUGS (3)
  1. OCREVUS [Suspect]
     Active Substance: OCRELIZUMAB
     Indication: Product used for unknown indication
     Route: 065
  2. TYSABRI [Concomitant]
     Active Substance: NATALIZUMAB
  3. BIOGEN [Concomitant]

REACTIONS (2)
  - Infusion related reaction [Unknown]
  - Fatigue [Unknown]
